FAERS Safety Report 16703006 (Version 1)
Quarter: 2019Q3

REPORT INFORMATION
  Report Type: Spontaneous
  Country: US (occurrence: US)
  Receive Date: 20190628
  Receipt Date: 20190628
  Transmission Date: 20191004
  Serious: No
  Sender: FDA-Public Use
  Company Number: None

PATIENT
  Age: 60 Year
  Sex: Male

DRUGS (1)
  1. REPATHA [Suspect]
     Active Substance: EVOLOCUMAB
     Dates: start: 201601

REACTIONS (4)
  - Muscle tightness [None]
  - Injection site pain [None]
  - Nasal congestion [None]
  - Injection site bruising [None]

NARRATIVE: CASE EVENT DATE: 20190628
